FAERS Safety Report 8218463-2 (Version None)
Quarter: 2012Q1

REPORT INFORMATION
  Report Type: 
  Country: None (occurrence: None)
  Receive Date: 20120319
  Receipt Date: 20120315
  Transmission Date: 20120608
  Serious: Yes (Other)
  Sender: FDA-Public Use
  Company Number: BR-BAYER-2012-026361

PATIENT
  Age: 55 Year
  Sex: Female

DRUGS (3)
  1. BETASERON [Suspect]
     Indication: RELAPSING-REMITTING MULTIPLE SCLEROSIS
     Dosage: 8 MIU, QOD
     Route: 058
     Dates: start: 20060101
  2. CARBAMAZEPINE [Concomitant]
     Indication: SEDATIVE THERAPY
     Dosage: 1 DF, QD
     Route: 048
     Dates: start: 20030101
  3. AMITRIPTYLINE HCL [Concomitant]
     Indication: DEPRESSION
     Dosage: 1 DF, QD
     Route: 048
     Dates: start: 20030101

REACTIONS (2)
  - IMMUNODEFICIENCY [None]
  - LEUKOPENIA [None]
